FAERS Safety Report 6654418-7 (Version None)
Quarter: 2010Q1

REPORT INFORMATION
  Report Type: 
  Country: None (occurrence: None)
  Receive Date: 20100326
  Receipt Date: 20100317
  Transmission Date: 20100710
  Serious: Yes (Hospitalization)
  Sender: FDA-Public Use
  Company Number: JP-PFIZER INC-2010036062

PATIENT

DRUGS (2)
  1. NORVASC [Suspect]
     Route: 048
  2. MUCOSTA [Concomitant]

REACTIONS (1)
  - TOXIC SKIN ERUPTION [None]
